FAERS Safety Report 14144296 (Version 11)
Quarter: 2018Q2

REPORT INFORMATION
  Report Type: Spontaneous
  Country: US (occurrence: US)
  Receive Date: 20171031
  Receipt Date: 20180514
  Transmission Date: 20180711
  Serious: Yes (Other)
  Sender: FDA-Public Use
  Company Number: US-PFIZER INC-2017463265

PATIENT
  Age: 65 Year
  Sex: Female
  Weight: 48.53 kg

DRUGS (14)
  1. IBRANCE [Suspect]
     Active Substance: PALBOCICLIB
     Indication: BREAST CANCER METASTATIC
     Dosage: 100 MG, CYCLIC (ONCE A DAY FOR 3 WEEKS ON, 1 WEEK OFF)
     Route: 048
     Dates: start: 20171006, end: 20171020
  2. VITAMIN D3 [Concomitant]
     Active Substance: CHOLECALCIFEROL
     Indication: MALABSORPTION
     Dosage: 400 IU, 1X/DAY
     Route: 048
  3. XGEVA [Concomitant]
     Active Substance: DENOSUMAB
     Indication: OSTEOPOROSIS
  4. VITAMIN D [Concomitant]
     Active Substance: CHOLECALCIFEROL
     Dosage: 2000 IU, UNK
  5. FOLIC ACID. [Concomitant]
     Active Substance: FOLIC ACID
     Indication: PROPHYLAXIS
     Dosage: 1 MG, 1X/DAY
     Route: 048
     Dates: start: 2012
  6. CORALAN [Concomitant]
     Active Substance: IVABRADINE HYDROCHLORIDE
     Indication: PULSE ABNORMAL
     Dosage: 5 MG, AS NEEDED
     Dates: start: 201706
  7. EVISTA [Concomitant]
     Active Substance: RALOXIFENE HYDROCHLORIDE
     Indication: OSTEOPOROSIS
     Dosage: 60 MG, DAILY
     Route: 048
     Dates: start: 201801
  8. IBRANCE [Suspect]
     Active Substance: PALBOCICLIB
     Dosage: 100 MG, CYCLIC (DAILY FOR 21 DAYS AND THEN 7 DAYS OFF)
     Route: 048
  9. XGEVA [Concomitant]
     Active Substance: DENOSUMAB
     Indication: PROPHYLAXIS
     Dosage: UNK, MONTHLY (INJECT ONCE A MONTH)
     Dates: start: 20171006, end: 20180228
  10. IBRANCE [Suspect]
     Active Substance: PALBOCICLIB
     Dosage: UNK
     Dates: end: 20180328
  11. AMLODIPINE [Concomitant]
     Active Substance: AMLODIPINE BESYLATE
     Indication: BLOOD PRESSURE ABNORMAL
     Dosage: 5 MG, AS NEEDED
     Dates: start: 201706
  12. FEMARA [Concomitant]
     Active Substance: LETROZOLE
     Indication: BLOOD OESTROGEN INCREASED
     Dosage: UNK
     Dates: start: 20170615, end: 20180104
  13. RALOXIFENE. [Concomitant]
     Active Substance: RALOXIFENE
     Indication: BLOOD OESTROGEN INCREASED
     Dosage: 60 MG, UNK
  14. CALCIUM [Concomitant]
     Active Substance: CALCIUM
     Indication: BONE DENSITY ABNORMAL
     Dosage: 600 IU, 1X/DAY
     Route: 048
     Dates: start: 20171008

REACTIONS (21)
  - Neutrophil count decreased [Recovering/Resolving]
  - Carbohydrate antigen 15-3 increased [Unknown]
  - Blood calcium increased [Unknown]
  - Dysgeusia [Recovering/Resolving]
  - Blood creatinine increased [Unknown]
  - Headache [Unknown]
  - Dizziness [Unknown]
  - Chills [Not Recovered/Not Resolved]
  - Diarrhoea [Recovered/Resolved]
  - Insomnia [Not Recovered/Not Resolved]
  - Abscess [Unknown]
  - Asthenia [Unknown]
  - Pelvic fracture [Recovered/Resolved with Sequelae]
  - Nausea [Recovered/Resolved]
  - Anxiety [Unknown]
  - Heart rate increased [Unknown]
  - White blood cell count decreased [Recovering/Resolving]
  - Pain [Unknown]
  - Fatigue [Unknown]
  - Palpitations [Unknown]
  - Full blood count decreased [Unknown]

NARRATIVE: CASE EVENT DATE: 201710
